FAERS Safety Report 9377876 (Version 1)
Quarter: 2013Q3

REPORT INFORMATION
  Report Type: Report from Study
  Country: DE (occurrence: DE)
  Receive Date: 20130701
  Receipt Date: 20130701
  Transmission Date: 20140515
  Serious: Yes (Death)
  Sender: FDA-Public Use
  Company Number: DE-ABBOTT-13P-062-1112642-00

PATIENT
  Age: 74 Year
  Sex: Male

DRUGS (1)
  1. TRENANTONE [Suspect]
     Indication: PROSTATE CANCER
     Route: 048
     Dates: start: 20120724, end: 20130124

REACTIONS (1)
  - Death [Fatal]
